FAERS Safety Report 8091799-4 (Version None)
Quarter: 2012Q1

REPORT INFORMATION
  Report Type: 
  Country: None (occurrence: None)
  Receive Date: 20120129
  Receipt Date: 20111114
  Transmission Date: 20120608
  Serious: No
  Sender: FDA-Public Use
  Company Number: US-ABBOTT-11P-163-0874011-00

PATIENT
  Age: 57 Year
  Sex: Female

DRUGS (12)
  1. WELLBUTRIN [Concomitant]
     Indication: DEPRESSION
     Dosage: 150 MG SR - TWICE DAILY
     Route: 048
  2. MS CONTIN [Concomitant]
     Indication: PAIN
  3. HYDROCODONE BITARTRATE [Concomitant]
     Indication: BREAKTHROUGH PAIN
     Dosage: 10/325
  4. OXAZEPAM [Concomitant]
     Indication: PRODUCT USED FOR UNKNOWN INDICATION
     Dosage: 30 MG - TWO CAPSULES AT BEDTIME
  5. SINGULAIR [Concomitant]
     Indication: ASTHMA
     Dosage: ONE AT BEDTIME
  6. PLAQUENIL [Concomitant]
     Indication: PRODUCT USED FOR UNKNOWN INDICATION
     Route: 048
  7. PREDNISONE TAB [Concomitant]
     Indication: PRODUCT USED FOR UNKNOWN INDICATION
     Route: 048
  8. TRAZODONE HCL [Concomitant]
     Indication: DEPRESSION
     Dosage: 100 MG - 3 TABLETS AT BEDTIME
  9. BENADRYL [Concomitant]
     Indication: ASTHMA
  10. HUMIRA [Suspect]
     Indication: RHEUMATOID ARTHRITIS
  11. ZYRTEC [Concomitant]
     Indication: ASTHMA
  12. CALCIUM +D [Concomitant]
     Indication: VITAMIN SUPPLEMENTATION
     Route: 048

REACTIONS (5)
  - FIBROMYALGIA [None]
  - HEPATIC ENZYME INCREASED [None]
  - RASH [None]
  - DEPRESSION [None]
  - DERMATOMYOSITIS [None]
